FAERS Safety Report 11024761 (Version 1)
Quarter: 2015Q2

REPORT INFORMATION
  Report Type: Spontaneous
  Country: US (occurrence: None)
  Receive Date: 20150413
  Receipt Date: 20150413
  Transmission Date: 20150821
  Serious: Yes (Hospitalization)
  Sender: FDA-Public Use
  Company Number: None

PATIENT
  Age: 80 Year
  Sex: Female
  Weight: 120 kg

DRUGS (13)
  1. IBUPROFEN (MOTRIN) [Concomitant]
  2. POLYSWACCHARIDE IRON COMPLEX (POLYSACCHARIDE IRON  PO) [Concomitant]
  3. PRAVASTATIN (PRAVACHOL) [Concomitant]
  4. ATENOLOL (TENORMIN) [Concomitant]
  5. B COMPLEX VITAMINS (VITAMIN B COMPLEX) [Concomitant]
  6. CALCIUM CARBONATE ANTACID [Concomitant]
  7. TAGAMET [Concomitant]
     Active Substance: CIMETIDINE
  8. CHOLECALCIFEROL (VITAMIN D-3) [Concomitant]
  9. ALBUTEROL. [Concomitant]
     Active Substance: ALBUTEROL
  10. KLOR-CON [Concomitant]
     Active Substance: POTASSIUM CHLORIDE
  11. WARFARIN [Suspect]
     Active Substance: WARFARIN
     Indication: ATRIAL FIBRILLATION
     Dosage: 1.5 TABLET
     Route: 048
  12. FUROSEMIDE (LASIX) [Concomitant]
  13. DOCUSATE SODIUIM  (COLACE) [Concomitant]

REACTIONS (3)
  - Rectal haemorrhage [None]
  - Dyspnoea exertional [None]
  - Diverticulum intestinal [None]

NARRATIVE: CASE EVENT DATE: 20150218
